FAERS Safety Report 7328659-X (Version None)
Quarter: 2011Q1

REPORT INFORMATION
  Report Type: 
  Country: None (occurrence: None)
  Receive Date: 20110303
  Receipt Date: 20110223
  Transmission Date: 20110831
  Serious: Yes (Other)
  Sender: FDA-Public Use
  Company Number: AU-ROCHE-736699

PATIENT
  Sex: Female
  Weight: 62 kg

DRUGS (1)
  1. HERCEPTIN [Suspect]
     Indication: BREAST CANCER
     Dosage: FREQUENCY: Q3/52, ONGOING FOR 1 YEAR TOTAL (AS REPORTED).
     Route: 042
     Dates: start: 20100420

REACTIONS (3)
  - DISCOMFORT [None]
  - SWELLING [None]
  - EXTRAVASATION [None]
